FAERS Safety Report 6132436-5 (Version None)
Quarter: 2009Q1

REPORT INFORMATION
  Report Type: 
  Country: None (occurrence: None)
  Receive Date: 20090325
  Receipt Date: 20090323
  Transmission Date: 20090719
  Serious: Yes (Other)
  Sender: FDA-Public Use
  Company Number: PHHY2009AU08988

PATIENT
  Age: 55 Year
  Sex: Female

DRUGS (2)
  1. CLOZAPINE [Suspect]
     Dosage: 800 MG/DAY
  2. CLOZAPINE [Suspect]
     Dosage: 600 MG,/DAY

REACTIONS (10)
  - BLINDNESS [None]
  - CATARACT SUBCAPSULAR [None]
  - CORNEAL DISORDER [None]
  - CORNEAL PIGMENTATION [None]
  - LENTICULAR OPACITIES [None]
  - MACULOPATHY [None]
  - PIGMENTATION DISORDER [None]
  - RETINAL DEGENERATION [None]
  - RETINOGRAM ABNORMAL [None]
  - RETINOPATHY [None]
